FAERS Safety Report 7866405-1 (Version None)
Quarter: 2011Q4

REPORT INFORMATION
  Report Type: 
  Country: None (occurrence: None)
  Receive Date: 20111028
  Receipt Date: 20110613
  Transmission Date: 20120403
  Serious: No
  Sender: FDA-Public Use
  Company Number: US-GLAXOSMITHKLINE-A0931311A

PATIENT
  Age: 81 Year
  Sex: Male

DRUGS (12)
  1. SPIRIVA [Concomitant]
  2. ASPIRIN [Concomitant]
  3. HYDROCHLOROTHIAZIDE [Concomitant]
  4. ADVAIR DISKUS 100/50 [Suspect]
     Indication: CHRONIC OBSTRUCTIVE PULMONARY DISEASE
     Dosage: 1PUFF TWICE PER DAY
     Route: 055
     Dates: start: 20110526
  5. CARVEDILOL [Concomitant]
  6. VITAMIN TAB [Concomitant]
  7. RAMIPRIL [Concomitant]
  8. DIGOXIN [Concomitant]
  9. FLONASE [Concomitant]
  10. FUROSEMIDE [Concomitant]
  11. SIMVASTATIN [Concomitant]
  12. COUMADIN [Concomitant]

REACTIONS (1)
  - INSOMNIA [None]
